FAERS Safety Report 14730233 (Version 2)
Quarter: 2018Q2

REPORT INFORMATION
  Report Type: Report from Study
  Country: US (occurrence: US)
  Receive Date: 20180406
  Receipt Date: 20180507
  Transmission Date: 20180711
  Serious: Yes (Other)
  Sender: FDA-Public Use
  Company Number: US-BAYER-2018-063700

PATIENT
  Age: 63 Year
  Sex: Female

DRUGS (2)
  1. STIVARGA [Suspect]
     Active Substance: REGORAFENIB
     Indication: COLON CANCER
     Dosage: 120 MG DAILY
     Route: 048
     Dates: start: 20180413
  2. STIVARGA [Suspect]
     Active Substance: REGORAFENIB
     Indication: COLON CANCER
     Dosage: 80 MG DAILY
     Route: 048
     Dates: start: 20180315, end: 201804

REACTIONS (11)
  - Blood magnesium decreased [Not Recovered/Not Resolved]
  - Drug dose omission [None]
  - Fatigue [Not Recovered/Not Resolved]
  - Diarrhoea [None]
  - Burning sensation [Recovered/Resolved]
  - Chest pain [Recovered/Resolved]
  - Blood potassium decreased [Not Recovered/Not Resolved]
  - Off label use [None]
  - Dehydration [Not Recovered/Not Resolved]
  - Gastrooesophageal reflux disease [Recovered/Resolved]
  - Dysphonia [Not Recovered/Not Resolved]

NARRATIVE: CASE EVENT DATE: 20180315
